FAERS Safety Report 6670586-5 (Version None)
Quarter: 2010Q2

REPORT INFORMATION
  Report Type: 
  Country: None (occurrence: None)
  Receive Date: 20100407
  Receipt Date: 20100326
  Transmission Date: 20101027
  Serious: Yes (Other)
  Sender: FDA-Public Use
  Company Number: GB-JNJFOC-20100308456

PATIENT
  Age: 25 Year
  Sex: Female

DRUGS (6)
  1. FENTANYL [Suspect]
     Indication: GENERAL ANAESTHESIA
     Route: 065
  2. ETOMIDATE [Suspect]
     Indication: GENERAL ANAESTHESIA
     Route: 065
  3. SUCCINYLCHOLINE CHLORIDE [Suspect]
     Indication: GENERAL ANAESTHESIA
     Route: 065
  4. VECURONIUM BROMIDE [Suspect]
     Indication: GENERAL ANAESTHESIA
     Route: 065
  5. SILDENAFIL [Suspect]
     Indication: PULMONARY HYPERTENSION
     Route: 048
  6. VASODILATORS [Suspect]
     Indication: PULMONARY HYPERTENSION
     Route: 048

REACTIONS (3)
  - BRADYCARDIA [None]
  - CARDIOVASCULAR DISORDER [None]
  - DRUG EXPOSURE DURING PREGNANCY [None]
